FAERS Safety Report 4732171-1 (Version None)
Quarter: 2005Q3

REPORT INFORMATION
  Report Type: 
  Country: None (occurrence: None)
  Receive Date: 20050802
  Receipt Date: 20050728
  Transmission Date: 20060218
  Serious: Yes (Hospitalization)
  Sender: FDA-Public Use
  Company Number: US-MERCK-0507USA04396

PATIENT
  Age: 68 Year
  Sex: Male

DRUGS (5)
  1. ALDOMET [Suspect]
     Route: 048
  2. ASPIRIN [Concomitant]
     Route: 065
  3. METOPROLOL [Concomitant]
     Route: 065
  4. FUROSEMIDE [Concomitant]
     Route: 065
  5. COLCHICINE [Concomitant]
     Route: 065

REACTIONS (5)
  - ANAEMIA HAEMOLYTIC AUTOIMMUNE [None]
  - CONJUNCTIVAL DISCOLOURATION [None]
  - MYOCARDIAL ISCHAEMIA [None]
  - OCULAR ICTERUS [None]
  - TROPONIN I INCREASED [None]
